FAERS Safety Report 8434842-2 (Version None)
Quarter: 2012Q2

REPORT INFORMATION
  Report Type: 
  Country: None (occurrence: None)
  Receive Date: 20120608
  Receipt Date: 20120524
  Transmission Date: 20120825
  Serious: Yes (Hospitalization)
  Sender: FDA-Public Use
  Company Number: 2011SGN00207

PATIENT
  Age: 20 Year
  Sex: Female
  Weight: 72 kg

DRUGS (6)
  1. PREDNISONE (PREDNISONE ACETATE) ONGOING [Concomitant]
  2. BRENTUXIMAB VEDOTIN (BRENTUXIMAB VEDOTIN) INJECTION [Suspect]
     Indication: HODGKIN'S DISEASE
     Dosage: 1.8 MG/KG, Q21D, INTRAVENOUS
     Route: 042
     Dates: start: 20110714, end: 20110824
  3. RABEPRAZOLE SODIUM (RABEPRAZOLE SODIUM) ONGOING [Concomitant]
  4. DEXAMETHASONE (DEXAMETHASONE SODIUM PHOSPHATE) ONGOING [Concomitant]
  5. MORPHINE SULFATE (MORPHINE SULFATE) ONGOING [Concomitant]
  6. HYDROMORPHONE (HYDROMORPHONE) ONGOING [Concomitant]

REACTIONS (3)
  - PNEUMONIA BACTERIAL [None]
  - RADIATION FIBROSIS [None]
  - RADIATION PNEUMONITIS [None]
